FAERS Safety Report 12608307 (Version 1)
Quarter: 2016Q3

REPORT INFORMATION
  Report Type: Spontaneous
  Country: JP (occurrence: JP)
  Receive Date: 20160729
  Receipt Date: 20160729
  Transmission Date: 20161109
  Serious: Yes (Other)
  Sender: FDA-Public Use
  Company Number: JP-MYLANLABS-2014M1004252

PATIENT

DRUGS (2)
  1. TACROLIMUS. [Suspect]
     Active Substance: TACROLIMUS
     Indication: ACUTE GRAFT VERSUS HOST DISEASE
     Dosage: ??
     Route: 065
     Dates: start: 201001, end: 201101
  2. PREDNISOLONE MYLAN [Suspect]
     Active Substance: PREDNISOLONE
     Dosage: ??
     Route: 048
     Dates: start: 201003, end: 201012

REACTIONS (1)
  - Porokeratosis [Not Recovered/Not Resolved]

NARRATIVE: CASE EVENT DATE: 2011
